FAERS Safety Report 20895270 (Version 1)
Quarter: 2022Q2

REPORT INFORMATION
  Report Type: Spontaneous
  Country: BR (occurrence: BR)
  Receive Date: 20220531
  Receipt Date: 20220531
  Transmission Date: 20220721
  Serious: Yes (Other)
  Sender: FDA-Public Use
  Company Number: BR-SA-SAC20220530001815

PATIENT
  Sex: Male
  Weight: 74 kg

DRUGS (2)
  1. ELOXATIN [Suspect]
     Active Substance: OXALIPLATIN
     Indication: Pancreatic carcinoma metastatic
     Dosage: 160.65 MG, Q4W
     Route: 042
     Dates: start: 20211020, end: 20211020
  2. IRINOTECAN [Concomitant]
     Active Substance: IRINOTECAN
     Indication: Adenocarcinoma pancreas
     Dosage: 170.1 MG, Q4W
     Route: 042
     Dates: start: 20211020, end: 20211020

REACTIONS (2)
  - Cholangitis [Recovering/Resolving]
  - Pyrexia [Recovering/Resolving]
